FAERS Safety Report 17294820 (Version 1)
Quarter: 2020Q1

REPORT INFORMATION
  Report Type: Spontaneous
  Country: GR (occurrence: GR)
  Receive Date: 20200121
  Receipt Date: 20200121
  Transmission Date: 20200409
  Serious: Yes (Hospitalization)
  Sender: FDA-Public Use
  Company Number: NVSC2020GR012691

PATIENT
  Age: 45 Year
  Sex: Male

DRUGS (1)
  1. SECUKINUMAB. [Suspect]
     Active Substance: SECUKINUMAB
     Indication: PSORIASIS
     Dosage: UNK
     Route: 065

REACTIONS (7)
  - Decreased vibratory sense [Recovered/Resolved with Sequelae]
  - Hyporeflexia [Recovered/Resolved with Sequelae]
  - Myelitis [Unknown]
  - Gait disturbance [Recovered/Resolved]
  - Dysaesthesia [Recovered/Resolved]
  - Pain [Recovered/Resolved]
  - Muscular weakness [Recovered/Resolved]
